FAERS Safety Report 6025467-7 (Version None)
Quarter: 2008Q4

REPORT INFORMATION
  Report Type: 
  Country: None (occurrence: None)
  Receive Date: 20081231
  Receipt Date: 20081222
  Transmission Date: 20090506
  Serious: Yes (Hospitalization, Other)
  Sender: FDA-Public Use
  Company Number: US-PFIZER INC-2008159733

PATIENT
  Sex: Female
  Weight: 69.8 kg

DRUGS (5)
  1. MICRONASE [Suspect]
     Indication: DIABETES MELLITUS
     Dosage: 10 MG, 2X/DAY
  2. GLIBENCLAMIDE [Suspect]
     Indication: DIABETES MELLITUS
  3. AVANDIA [Suspect]
     Indication: DIABETES MELLITUS
  4. GLUCOPHAGE [Suspect]
     Indication: DIABETES MELLITUS
     Dosage: 750 MG, 2X/DAY
     Dates: end: 20081220
  5. GLUCOPHAGE [Suspect]
     Dosage: 1000 MG, 2X/DAY
     Dates: start: 20081221

REACTIONS (7)
  - BLOOD GLUCOSE DECREASED [None]
  - BLOOD GLUCOSE INCREASED [None]
  - CARDIAC DISORDER [None]
  - DIARRHOEA [None]
  - FLATULENCE [None]
  - GLYCOSYLATED HAEMOGLOBIN INCREASED [None]
  - PNEUMONIA [None]
